FAERS Safety Report 5443332-0 (Version None)
Quarter: 2007Q3

REPORT INFORMATION
  Report Type: 
  Country: None (occurrence: None)
  Receive Date: 20070905
  Receipt Date: 20070828
  Transmission Date: 20080115
  Serious: Yes (Other)
  Sender: FDA-Public Use
  Company Number: JP-ASTRAZENECA-2007AP05388

PATIENT
  Age: 15 Year

DRUGS (1)
  1. ZOMIG [Suspect]
     Route: 048
     Dates: start: 20070604, end: 20070604

REACTIONS (2)
  - ALTERED STATE OF CONSCIOUSNESS [None]
  - SUICIDE ATTEMPT [None]
